FAERS Safety Report 5915617-2 (Version None)
Quarter: 2008Q4

REPORT INFORMATION
  Report Type: 
  Country: None (occurrence: None)
  Receive Date: 20081010
  Receipt Date: 20080928
  Transmission Date: 20090506
  Serious: Yes (Other)
  Sender: FDA-Public Use
  Company Number: US-PFIZER INC-2008082375

PATIENT
  Sex: Male

DRUGS (1)
  1. CHANTIX [Suspect]
     Dates: start: 20080201, end: 20080301

REACTIONS (14)
  - ASTHENIA [None]
  - CONVULSION [None]
  - DYSKINESIA [None]
  - DYSPHAGIA [None]
  - DYSPNOEA [None]
  - FALL [None]
  - GAIT DISTURBANCE [None]
  - ILL-DEFINED DISORDER [None]
  - IMMUNE SYSTEM DISORDER [None]
  - IMPAIRED DRIVING ABILITY [None]
  - NERVOUSNESS [None]
  - PHARYNGEAL OEDEMA [None]
  - SOMNOLENCE [None]
  - THROAT TIGHTNESS [None]
